FAERS Safety Report 13872760 (Version 1)
Quarter: 2017Q3

REPORT INFORMATION
  Report Type: Spontaneous
  Country: US (occurrence: US)
  Receive Date: 20170816
  Receipt Date: 20170816
  Transmission Date: 20171127
  Serious: Yes (Other)
  Sender: FDA-Public Use
  Company Number: US-PFIZER INC-2017354316

PATIENT
  Age: 65 Year
  Sex: Female

DRUGS (17)
  1. IBUPROFEN. [Concomitant]
     Active Substance: IBUPROFEN
     Indication: PAIN
  2. TIZANIDINE HCL [Concomitant]
     Active Substance: TIZANIDINE HYDROCHLORIDE
     Indication: MUSCLE SPASMS
     Dosage: 4 MG, UNK
  3. IBUPROFEN. [Concomitant]
     Active Substance: IBUPROFEN
     Indication: SWELLING
     Dosage: 800 MG, UNK
  4. SUCRALFATE. [Concomitant]
     Active Substance: SUCRALFATE
     Indication: ABDOMINAL DISCOMFORT
     Dosage: 1 MG, 2X/DAY
  5. EMBEDA [Suspect]
     Active Substance: MORPHINE SULFATE\NALTREXONE HYDROCHLORIDE
     Indication: PAIN
     Dosage: 1 DF, 2X/DAY, ^[MORPHINE SULFATE 60 MG]/[NALTREXONE HYDROCHLORIDE 2.4 MG] EVERY TWELVE HOURS^
     Dates: start: 20170812
  6. SENNA LAXATIVE [Concomitant]
     Active Substance: SENNOSIDES
     Dosage: 8.6 MG, 1X/DAY
  7. PEPCID [Concomitant]
     Active Substance: FAMOTIDINE
     Indication: GASTRIC ULCER
     Dosage: 20 MG, 2X/DAY
  8. MELOXICAM. [Concomitant]
     Active Substance: MELOXICAM
     Indication: ARTHRALGIA
     Dosage: 15 MG, 1X/DAY, ^TWO 7.5 MG^
  9. FEROSUL [Concomitant]
     Indication: BLOOD IRON DECREASED
     Dosage: 325 MG, 1X/DAY
  10. ADVAIR UNSPEC [Concomitant]
     Indication: CHRONIC OBSTRUCTIVE PULMONARY DISEASE
     Dosage: 1 DF, AS NEEDED, ^[FLUTICASONE PROPIONATE 250 MCG, SALMETEROL XINAFOATE 50 MCG]^
  11. OSCAL /00514701/ [Concomitant]
     Indication: MINERAL SUPPLEMENTATION
     Dosage: 500 MG, 1X/DAY
  12. OMEPRAZOLE. [Concomitant]
     Active Substance: OMEPRAZOLE
     Indication: GASTRIC ULCER
     Dosage: 40 MG, 1X/DAY
  13. VENTOLIN [Concomitant]
     Active Substance: ALBUTEROL SULFATE
     Dosage: AS NEEDED
  14. LYRICA [Concomitant]
     Active Substance: PREGABALIN
     Indication: SCIATICA
     Dosage: 200 MG, 3X/DAY
  15. ALBUTEROL SULFATE. [Concomitant]
     Active Substance: ALBUTEROL SULFATE
     Dosage: AS NEEDED, INHALATION SOLUTION
     Route: 055
  16. LYRICA [Concomitant]
     Active Substance: PREGABALIN
     Indication: NERVE INJURY
  17. TAB A VITE [Concomitant]
     Dosage: ONCE A DAY

REACTIONS (4)
  - Mania [Not Recovered/Not Resolved]
  - Bipolar disorder [Unknown]
  - Logorrhoea [Unknown]
  - Drug effect incomplete [Unknown]

NARRATIVE: CASE EVENT DATE: 201708
